FAERS Safety Report 9014911 (Version 1)
Quarter: 2013Q1

REPORT INFORMATION
  Report Type: Spontaneous
  Country: US (occurrence: US)
  Receive Date: 20130116
  Receipt Date: 20130116
  Transmission Date: 20140127
  Serious: No
  Sender: FDA-Public Use
  Company Number: US-BIOGENIDEC-2013BI001952

PATIENT
  Age: 18 Year
  Sex: Female

DRUGS (1)
  1. TYSABRI [Suspect]
     Indication: MULTIPLE SCLEROSIS
     Route: 042
     Dates: start: 20121113

REACTIONS (3)
  - Pyrexia [Recovered/Resolved]
  - Oropharyngeal pain [Recovered/Resolved]
  - Pharyngitis streptococcal [Unknown]
